FAERS Safety Report 19987765 (Version 1)
Quarter: 2021Q4

REPORT INFORMATION
  Report Type: Spontaneous
  Country: US (occurrence: US)
  Receive Date: 20211022
  Receipt Date: 20211022
  Transmission Date: 20220303
  Serious: No
  Sender: FDA-Public Use
  Company Number: US-PFIZER INC-2021568947

PATIENT
  Age: 51 Year
  Sex: Female

DRUGS (1)
  1. TOFACITINIB [Suspect]
     Active Substance: TOFACITINIB
     Indication: Alopecia areata
     Dosage: UNK

REACTIONS (4)
  - Off label use [Unknown]
  - Rash [Unknown]
  - Burning sensation [Unknown]
  - Discomfort [Unknown]
